FAERS Safety Report 6473200-7 (Version None)
Quarter: 2009Q4

REPORT INFORMATION
  Report Type: 
  Country: None (occurrence: None)
  Receive Date: 20091204
  Receipt Date: 20080825
  Transmission Date: 20100525
  Serious: Yes (Hospitalization, Other)
  Sender: FDA-Public Use
  Company Number: US-ELI_LILLY_AND_COMPANY-US200806002553

PATIENT
  Sex: Female

DRUGS (17)
  1. HUMALOG [Suspect]
     Indication: DIABETES MELLITUS
     Dosage: 5 U, AS NEEDED
     Dates: start: 20080603
  2. HUMULIN N [Suspect]
     Indication: DIABETES MELLITUS
     Dosage: UNK, UNK
     Dates: start: 19960101, end: 20080603
  3. HUMULIN R [Suspect]
     Indication: DIABETES MELLITUS
     Dosage: UNK, UNK
     Dates: start: 19960101, end: 20080603
  4. LANTUS [Concomitant]
     Indication: DIABETES MELLITUS
     Dosage: 30 U, EACH EVENING
  5. NITROGLYCERIN [Concomitant]
     Dosage: UNK, AS NEEDED
     Route: 060
  6. RANEXA [Concomitant]
     Dosage: 500 MG, 2/D
  7. BENTYL [Concomitant]
     Dosage: 10 MG, AS NEEDED
  8. H2 BLOCKER [Concomitant]
     Indication: DYSPEPSIA
  9. PLAVIX [Concomitant]
     Dosage: 75 MG, DAILY (1/D)
  10. ASPIRIN [Concomitant]
     Dosage: 81 MG, DAILY (1/D)
  11. TOPROL-XL [Concomitant]
     Dosage: 12.5 MG, DAILY (1/D)
  12. CRESTOR [Concomitant]
     Dosage: 5 MG, QOD
  13. PEPCID [Concomitant]
     Dosage: 20 MG, 2/D
  14. ZOFRAN [Concomitant]
     Dosage: 4 MG, AS NEEDED
  15. XANAX [Concomitant]
     Dosage: 0.5 MG, EACH EVENING
  16. ZOLOFT [Concomitant]
     Dosage: 50 MG, EACH EVENING
  17. FISH OIL [Concomitant]
     Dosage: 1200 MG, 2/D

REACTIONS (19)
  - ABDOMINAL PAIN [None]
  - ABDOMINAL PAIN UPPER [None]
  - BLOOD GLUCOSE INCREASED [None]
  - CHEST PAIN [None]
  - DIZZINESS [None]
  - DYSPEPSIA [None]
  - DYSPNOEA [None]
  - FEMORAL ARTERY DISSECTION [None]
  - FEMORAL BRUIT [None]
  - HYPERHIDROSIS [None]
  - HYPOTENSION [None]
  - MYOCARDIAL INFARCTION [None]
  - NAUSEA [None]
  - PALPITATIONS [None]
  - POLYP [None]
  - POLYP COLORECTAL [None]
  - RIGHT VENTRICULAR FAILURE [None]
  - STENT PLACEMENT [None]
  - TENDERNESS [None]
